FAERS Safety Report 9419426 (Version 2)
Quarter: 2013Q3

REPORT INFORMATION
  Report Type: Spontaneous
  Country: CA (occurrence: CA)
  Receive Date: 20130725
  Receipt Date: 20130731
  Transmission Date: 20140515
  Serious: Yes (Other)
  Sender: FDA-Public Use
  Company Number: CA-PFIZER INC-2013215865

PATIENT
  Age: 35 Year
  Sex: Male

DRUGS (2)
  1. PIPERACILLIN [Suspect]
     Dosage: UNK
  2. CEFEPIME [Suspect]
     Dosage: UNK

REACTIONS (2)
  - Laryngeal oedema [Unknown]
  - Bronchospasm [Unknown]
